FAERS Safety Report 8344692-3 (Version None)
Quarter: 2012Q2

REPORT INFORMATION
  Report Type: 
  Country: None (occurrence: None)
  Receive Date: 20120508
  Receipt Date: 20120426
  Transmission Date: 20120825
  Serious: No
  Sender: FDA-Public Use
  Company Number: US-ROXANE LABORATORIES, INC.-2012-RO-01151RO

PATIENT
  Age: 73 Year
  Sex: Male

DRUGS (1)
  1. FLUTICASONE FUROATE [Suspect]
     Indication: RHINITIS
     Route: 045
     Dates: start: 20120301

REACTIONS (1)
  - BLOOD GLUCOSE INCREASED [None]
